FAERS Safety Report 9707872 (Version 3)
Quarter: 2014Q1

REPORT INFORMATION
  Report Type: Spontaneous
  Country: IT (occurrence: FR)
  Receive Date: 20131125
  Receipt Date: 20140220
  Transmission Date: 20141002
  Serious: Yes (Hospitalization)
  Sender: FDA-Public Use
  Company Number: FR-FRI-1000051592

PATIENT
  Age: 63 Year
  Sex: Male

DRUGS (7)
  1. NEBIVOLOL [Suspect]
     Indication: HYPERTENSION
     Dosage: 5 MG
     Route: 048
     Dates: end: 20130829
  2. EUCREAS [Suspect]
     Indication: TYPE 2 DIABETES MELLITUS
     Route: 048
     Dates: start: 20130801, end: 20130829
  3. TRIATEC [Suspect]
     Indication: HYPERTENSION
     Dosage: 5 MG
     Route: 048
     Dates: start: 20130801, end: 20130829
  4. ZOCOR [Suspect]
     Dosage: 20 MG
     Route: 048
     Dates: end: 20130829
  5. DIAMICRON [Suspect]
     Indication: TYPE 2 DIABETES MELLITUS
     Dosage: 30 MG
     Route: 048
     Dates: end: 20130829
  6. IXPRIM [Suspect]
     Indication: ANALGESIC THERAPY
     Route: 048
     Dates: start: 20130822, end: 20130829
  7. LERCAN [Concomitant]
     Indication: HYPERTENSION
     Route: 048
     Dates: end: 20130829

REACTIONS (4)
  - Renal failure acute [Recovered/Resolved]
  - Tubulointerstitial nephritis [Recovered/Resolved]
  - Hyperkalaemia [Recovered/Resolved]
  - Lipase increased [Recovered/Resolved]
